FAERS Safety Report 10376983 (Version 2)
Quarter: 2014Q4

REPORT INFORMATION
  Report Type: Spontaneous
  Country: IT (occurrence: IT)
  Receive Date: 20140812
  Receipt Date: 20141201
  Transmission Date: 20150528
  Serious: Yes (Hospitalization)
  Sender: FDA-Public Use
  Company Number: IT-ACCORD-025196

PATIENT
  Age: 75 Year
  Sex: Male

DRUGS (14)
  1. SEROQUEL [Concomitant]
     Active Substance: QUETIAPINE FUMARATE
     Dosage: SEROQUEL ^25 MG FILM-COATED TABLETS^ 30 TABS
     Route: 048
  2. ZYLORIC [Concomitant]
     Active Substance: ALLOPURINOL
     Dosage: ZYLORIC ^300 MG TABLETS^ 30 TABLETS DIVISIBLE
     Route: 048
  3. TICLOPIDINE [Concomitant]
     Active Substance: TICLOPIDINE
     Route: 048
  4. MOTILIUM [Concomitant]
     Active Substance: DOMPERIDONE
     Dosage: MOTILIUM ^10 MG FILM-COATED TABLETS^ 30 TABS
     Route: 048
  5. DEPALGOS [Concomitant]
     Active Substance: ACETAMINOPHEN\OXYCODONE HYDROCHLORIDE
     Dosage: DEPALGOS ^5 MG+325 MG FILM-COATED TABLETS^ ?28 TABLETS
     Route: 048
  6. SELEPARINA [Concomitant]
     Active Substance: NADROPARIN CALCIUM
     Dosage: SELEPARINA ^ANTIXA 3800 IU/0.4ML SOLUTION FOR INJECTION^ 6 PRE-FILLED SYRINGES 0.4ML
     Route: 058
  7. CARBOPLATIN. [Suspect]
     Active Substance: CARBOPLATIN
     Indication: LUNG ADENOCARCINOMA
     Route: 042
     Dates: start: 20140711
  8. GEMCITABINE/GEMCITABINE HYDROCHLORIDE [Suspect]
     Active Substance: GEMCITABINE\GEMCITABINE HYDROCHLORIDE
     Indication: LUNG ADENOCARCINOMA
     Route: 042
     Dates: start: 20140711
  9. ALIFLUS DISKUS [Concomitant]
     Active Substance: FLUTICASONE PROPIONATE\SALMETEROL XINAFOATE
     Dosage: ALIFLUS DISKUS 50/100
  10. MYCOSTATIN [Concomitant]
     Active Substance: NYSTATIN
     Dosage: MYCOSTATIN ^100000 IU/ML ORAL SUSPENSION^ BOTTLE 100 ML
     Route: 048
  11. SOLDESAM [Concomitant]
     Active Substance: DEXAMETHASONE
     Dosage: SOLDESAM ^0.2% DROPS ORAL SOLUTION^ BOTTLE 10 ML
     Route: 048
  12. RANITIDINE [Concomitant]
     Active Substance: RANITIDINE\RANITIDINE HYDROCHLORIDE
     Route: 048
  13. NEBIVOLOL [Concomitant]
     Active Substance: NEBIVOLOL
     Route: 048
  14. MODURETIC 5-50 [Concomitant]
     Active Substance: AMILORIDE HYDROCHLORIDE\HYDROCHLOROTHIAZIDE
     Dosage: MODURETIC ^5 MG + 50 MG TABLETS^ 20 TABLETS
     Route: 048

REACTIONS (3)
  - Diarrhoea [Recovering/Resolving]
  - Pancytopenia [Recovering/Resolving]
  - Pyrexia [Recovering/Resolving]

NARRATIVE: CASE EVENT DATE: 20140721
